FAERS Safety Report 12182531 (Version 1)
Quarter: 2016Q1

REPORT INFORMATION
  Report Type: Report from Study
  Country: US (occurrence: US)
  Receive Date: 20160316
  Receipt Date: 20160316
  Transmission Date: 20160526
  Serious: No
  Sender: FDA-Public Use
  Company Number: US-THERATECHNOLOGIES, INC.-TH-2016-00025

PATIENT
  Sex: Male

DRUGS (11)
  1. PREZCOBIX [Concomitant]
     Active Substance: COBICISTAT\DARUNAVIR ETHANOLATE
  2. FUROSEMIDE. [Concomitant]
     Active Substance: FUROSEMIDE
  3. HYDROCO/APAP [Concomitant]
     Active Substance: ACETAMINOPHEN\HYDROCODONE
  4. DOXYCYCLINE. [Concomitant]
     Active Substance: DOXYCYCLINE
  5. LEVOTHYROXINE. [Concomitant]
     Active Substance: LEVOTHYROXINE
  6. FINASTERIDE. [Concomitant]
     Active Substance: FINASTERIDE
  7. EGRIFTA [Suspect]
     Active Substance: TESAMORELIN
     Indication: LIPODYSTROPHY ACQUIRED
     Dosage: 2 MILLIGRAM
     Route: 058
     Dates: start: 20150724
  8. METRONIDAZOLE. [Concomitant]
     Active Substance: METRONIDAZOLE
  9. PREDNISONE. [Concomitant]
     Active Substance: PREDNISONE
  10. CHANTIX [Concomitant]
     Active Substance: VARENICLINE TARTRATE
  11. ATORVASTATIN [Concomitant]
     Active Substance: ATORVASTATIN

REACTIONS (2)
  - Weight increased [Unknown]
  - Fluid retention [Unknown]
